FAERS Safety Report 25289754 (Version 1)
Quarter: 2025Q2

REPORT INFORMATION
  Report Type: Spontaneous
  Country: GR (occurrence: GR)
  Receive Date: 20250509
  Receipt Date: 20250509
  Transmission Date: 20250716
  Serious: Yes (Other)
  Sender: MERCK SHARP & DOHME LLC
  Company Number: GR-009507513-2283519

PATIENT
  Age: 34 Year

DRUGS (1)
  1. TEMODAL [Suspect]
     Active Substance: TEMOZOLOMIDE
     Indication: Malignant oligodendroglioma

REACTIONS (2)
  - Recurrent cancer [Unknown]
  - Malignant oligodendroglioma [Unknown]

NARRATIVE: CASE EVENT DATE: 20250101
